FAERS Safety Report 6469047-8 (Version None)
Quarter: 2009Q4

REPORT INFORMATION
  Report Type: 
  Country: None (occurrence: None)
  Receive Date: 20091203
  Receipt Date: 20091130
  Transmission Date: 20100525
  Serious: Yes (Death, Hospitalization)
  Sender: FDA-Public Use
  Company Number: PHHY2009CA39769

PATIENT
  Sex: Male

DRUGS (1)
  1. EXJADE [Suspect]
     Indication: MYELODYSPLASTIC SYNDROME
     Dosage: 500 MG
     Route: 048
     Dates: start: 20090801

REACTIONS (6)
  - ABSCESS [None]
  - DEATH [None]
  - INFECTION [None]
  - MYOCARDIAL INFARCTION [None]
  - OSTEOMYELITIS [None]
  - PYREXIA [None]
